FAERS Safety Report 7280548-5 (Version None)
Quarter: 2011Q1

REPORT INFORMATION
  Report Type: 
  Country: None (occurrence: None)
  Receive Date: 20110208
  Receipt Date: 20101216
  Transmission Date: 20110831
  Serious: Yes (Hospitalization, Other)
  Sender: FDA-Public Use
  Company Number: US-BAYER-201032407NA

PATIENT
  Sex: Female
  Weight: 65.76 kg

DRUGS (7)
  1. YAZ [Suspect]
     Indication: PRODUCT USED FOR UNKNOWN INDICATION
     Route: 048
     Dates: start: 20070601, end: 20070701
  2. ADDERALL 10 [Concomitant]
     Indication: ATTENTION DEFICIT/HYPERACTIVITY DISORDER
     Dosage: 10 MG, BID
  3. ATIVAN [Concomitant]
     Dosage: 1 MG, UNK
     Route: 042
  4. PROVERA [Concomitant]
     Indication: VAGINAL HAEMORRHAGE
     Dosage: 10 MG, UNK
     Dates: start: 20070412, end: 20071022
  5. ASCORBIC ACID [Concomitant]
     Dosage: UNK
     Dates: start: 20050101
  6. ALBUTEROL [Concomitant]
  7. IBUPROFEN [Concomitant]
     Dosage: UNK
     Dates: start: 19960101

REACTIONS (2)
  - PULMONARY INFARCTION [None]
  - PULMONARY EMBOLISM [None]
